FAERS Safety Report 5513251-X (Version None)
Quarter: 2007Q4

REPORT INFORMATION
  Report Type: 
  Country: None (occurrence: None)
  Receive Date: 20071112
  Receipt Date: 20071029
  Transmission Date: 20080405
  Serious: Yes (Other)
  Sender: FDA-Public Use
  Company Number: GB-ELI_LILLY_AND_COMPANY-GB200710007469

PATIENT
  Age: 17 Year
  Sex: Male
  Weight: 83.6 kg

DRUGS (2)
  1. HUMALOG [Suspect]
     Dosage: 140 IU, UNK
     Route: 058
     Dates: start: 20050623, end: 20060125
  2. INSULIN GLARGINE [Concomitant]
     Indication: DIABETES MELLITUS
     Dosage: 40 IU, UNK
     Route: 058
     Dates: start: 20050623

REACTIONS (2)
  - INJECTION SITE PAIN [None]
  - INJECTION SITE RASH [None]
